FAERS Safety Report 11214504 (Version 7)
Quarter: 2015Q3

REPORT INFORMATION
  Report Type: Spontaneous
  Country: JP (occurrence: JP)
  Receive Date: 20150624
  Receipt Date: 20150911
  Transmission Date: 20151125
  Serious: Yes (Other)
  Sender: FDA-Public Use
  Company Number: JP-PFIZER INC-2015147511

PATIENT
  Age: 47 Year
  Sex: Male
  Weight: 89 kg

DRUGS (11)
  1. MICARDIS [Suspect]
     Active Substance: TELMISARTAN
     Dosage: UNK
  2. MICARDIS [Suspect]
     Active Substance: TELMISARTAN
     Indication: HYPERTENSION
     Dosage: 20 MG, 1X/DAY, AFTER BREAKFAST
     Route: 048
     Dates: start: 20150330, end: 20150423
  3. LIPITOR [Suspect]
     Active Substance: ATORVASTATIN CALCIUM
     Dosage: 10 MG, 1X/DAY (AFTER BREAKFAST)
     Route: 048
     Dates: start: 20150601
  4. MICARDIS [Suspect]
     Active Substance: TELMISARTAN
     Dosage: 20 MG, 1X/DAY
     Route: 048
     Dates: start: 20150622
  5. ZYLORIC [Concomitant]
     Active Substance: ALLOPURINOL
     Indication: HYPERURICAEMIA
     Dosage: 100 MG, 1X/DAY AFTER DINNER
     Route: 048
     Dates: start: 20141015
  6. LIPITOR [Suspect]
     Active Substance: ATORVASTATIN CALCIUM
     Indication: HYPERLIPIDAEMIA
     Dosage: 10 MG, 1X/DAY (AFTER DINNER)
     Route: 048
     Dates: start: 20141015, end: 20150423
  7. EQUA [Suspect]
     Active Substance: VILDAGLIPTIN
     Indication: TYPE 2 DIABETES MELLITUS
     Dosage: 50 MG, 1X/DAY AFTER BREAKFAST
     Route: 048
     Dates: start: 20150402, end: 20150406
  8. MICARDIS [Suspect]
     Active Substance: TELMISARTAN
     Dosage: 20 MG, 1X/DAY
     Route: 048
     Dates: start: 20150601
  9. SUGLAT [Suspect]
     Active Substance: IPRAGLIFLOZIN L-PROLINE
     Dosage: 50 MG, 1X/DAY, AFTER BREAKFAST
     Route: 048
     Dates: start: 20150713
  10. EQUA [Suspect]
     Active Substance: VILDAGLIPTIN
     Dosage: 100 MG, 1X/DAY AFTER BREAKFAST
     Route: 048
     Dates: start: 20150407, end: 20150423
  11. SUGLAT [Suspect]
     Active Substance: IPRAGLIFLOZIN L-PROLINE
     Indication: TYPE 2 DIABETES MELLITUS
     Dosage: 50 MG, 1X/DAY, AFTER BREAKFAST
     Route: 048
     Dates: start: 20150323, end: 20150423

REACTIONS (2)
  - Hepatic function abnormal [Recovered/Resolved]
  - Type 2 diabetes mellitus [Not Recovered/Not Resolved]

NARRATIVE: CASE EVENT DATE: 20141201
